FAERS Safety Report 6608824 (Version 33)
Quarter: 2013Q3

REPORT INFORMATION
  Report Type: Spontaneous
  Country: US (occurrence: US)
  Receive Date: 20080407
  Receipt Date: 20130809
  Transmission Date: 20140515
  Serious: Yes (Hospitalization, Other)
  Sender: FDA-Public Use
  Company Number: PHEH2008US03185

PATIENT
  Age: 44 Year
  Sex: Female

DRUGS (57)
  1. ZOMETA [Suspect]
     Indication: METASTASES TO BONE
     Dosage: 4 MG,
     Dates: start: 200410, end: 200905
  2. CARBOPLATIN [Concomitant]
  3. TAXOTERE [Concomitant]
  4. HERCEPTIN ^GENENTECH^ [Concomitant]
  5. BENADRYL ^ACHE^ [Concomitant]
  6. TYLENOL [Concomitant]
  7. ARANESP [Concomitant]
  8. DECADRON                                /CAN/ [Concomitant]
  9. PAXIL [Concomitant]
  10. G-CSF [Concomitant]
  11. NEULASTA [Concomitant]
     Dosage: 6 MG,
     Route: 058
  12. PROCRIT                            /00909301/ [Concomitant]
  13. PRAVASTATIN [Concomitant]
  14. FENOFIBRATE [Concomitant]
  15. GABAPENTIN [Concomitant]
  16. CHANTIX [Concomitant]
  17. FERROUS GLUCONATE [Concomitant]
  18. ZYPREXA [Concomitant]
  19. SPIRIVA ^BOEHRINGER INGELHEIM^ [Concomitant]
  20. ALBUTEROL [Concomitant]
  21. WELLBUTRIN SR [Concomitant]
  22. TAMOXIFEN CITRATE [Concomitant]
  23. TOBREX [Concomitant]
  24. FLONASE [Concomitant]
  25. DARVOCET-N [Concomitant]
  26. SKELAXIN [Concomitant]
  27. CELEXA [Concomitant]
  28. RITALIN - SLOW RELEASE [Concomitant]
     Indication: SLEEP APNOEA SYNDROME
     Dosage: 20 MG, QD
     Dates: start: 20100118
  29. DEXEDRINE ^MEDEVA^ [Concomitant]
     Dosage: 20 MG, QD
  30. DESOXYN [Concomitant]
  31. ADVAIR [Concomitant]
  32. OXYCODONE [Concomitant]
  33. MORPHINE [Concomitant]
  34. ATIVAN [Concomitant]
  35. COMPAZINE [Concomitant]
  36. DEXAMETHASONE [Concomitant]
  37. TRASTUZUMAB [Concomitant]
  38. METHYLPREDNISOLONE [Concomitant]
  39. OXYMORPHONE [Concomitant]
  40. ARIMIDEX ^ASTRAZENECA^ [Concomitant]
  41. OXYCONTIN [Concomitant]
  42. TAXOL [Concomitant]
  43. HYDROCODONE [Concomitant]
     Indication: PAIN
     Dosage: 7.5 MG, Q6H
  44. PRAVACHOL [Concomitant]
  45. PAMELOR [Concomitant]
     Dosage: 25 MG, QHS
  46. DALMANE [Concomitant]
     Dosage: 30 MG, QHS
  47. CALCIUM [Concomitant]
     Dosage: 600 MG, BID
  48. AMITRIPTYLINE [Concomitant]
     Dosage: 25 MG, QHS
  49. NOLVADEX ^ASTRAZENECA^ [Concomitant]
     Dosage: 20 MG, QD
  50. REMERON [Concomitant]
  51. ORAL CONTRACEPTIVE NOS [Concomitant]
  52. KLOR-CON [Concomitant]
  53. ZANTAC [Concomitant]
  54. MORPHINE SULFATE [Concomitant]
  55. CALCIUM WITH VITAMIN D [Concomitant]
  56. NORMAL SALINE [Concomitant]
  57. MULTIVITAMIN ^LAPPE^ [Concomitant]

REACTIONS (108)
  - Vomiting [Recovered/Resolved]
  - Dehydration [Recovered/Resolved]
  - Respiratory depression [Recovering/Resolving]
  - Diarrhoea [Recovered/Resolved]
  - Clostridium difficile colitis [Unknown]
  - Mood disorder due to a general medical condition [Unknown]
  - Mood swings [Unknown]
  - Mental status changes [Unknown]
  - Delusion [Unknown]
  - Malaise [Unknown]
  - Musculoskeletal pain [Unknown]
  - Rash erythematous [Recovering/Resolving]
  - Hallucination [Unknown]
  - Implant site infection [Unknown]
  - Human papilloma virus test positive [Unknown]
  - Osteonecrosis of jaw [Unknown]
  - Trismus [Unknown]
  - Bone disorder [Unknown]
  - Deformity [Unknown]
  - Gingival disorder [Unknown]
  - Gingival bleeding [Unknown]
  - Muscle spasms [Unknown]
  - Anxiety [Unknown]
  - Periodontitis [Unknown]
  - Toothache [Unknown]
  - Pain in jaw [Unknown]
  - Physical disability [Unknown]
  - Scar [Unknown]
  - Osteomyelitis [Unknown]
  - Emotional distress [Unknown]
  - Jaw fracture [Unknown]
  - Facial pain [Unknown]
  - Infection [Unknown]
  - Dystonia [Unknown]
  - Oral cavity fistula [Unknown]
  - VIIth nerve paralysis [Unknown]
  - Hemiplegia [Unknown]
  - Hypoaesthesia [Unknown]
  - Paraesthesia [Unknown]
  - Cervix carcinoma [Unknown]
  - Cervical dysplasia [Unknown]
  - Hot flush [Unknown]
  - Malignant neoplasm progression [Unknown]
  - Mesenteric vascular insufficiency [Unknown]
  - Radiculopathy [Unknown]
  - Radicular pain [Unknown]
  - Emphysema [Unknown]
  - Suicidal ideation [Unknown]
  - Dermatitis contact [Unknown]
  - Intervertebral disc disorder [Unknown]
  - Dysarthria [Unknown]
  - Neuropathy peripheral [Unknown]
  - Fracture [Unknown]
  - Dental caries [Unknown]
  - Salivary gland enlargement [Unknown]
  - Bone loss [Unknown]
  - Injury [Unknown]
  - Radiation associated pain [Unknown]
  - Gait disturbance [Unknown]
  - Walking aid user [Unknown]
  - Pyrexia [Unknown]
  - Memory impairment [Unknown]
  - Dyspnoea [Unknown]
  - Sacroiliitis [Unknown]
  - Mitral valve incompetence [Unknown]
  - Sleep apnoea syndrome [Unknown]
  - Fatigue [Unknown]
  - Back pain [Unknown]
  - Arthralgia [Unknown]
  - Pancytopenia [Unknown]
  - Neutropenia [Recovered/Resolved]
  - Weight increased [Unknown]
  - Gallbladder disorder [Recovering/Resolving]
  - Depression [Unknown]
  - Hip fracture [Unknown]
  - Neuritis [Unknown]
  - Neuralgia [Unknown]
  - Spinal column stenosis [Unknown]
  - Pain [Unknown]
  - Pulmonary mass [Unknown]
  - Dizziness [Unknown]
  - Pancreatitis chronic [Unknown]
  - Genital neoplasm malignant female [Unknown]
  - Diverticulitis [Unknown]
  - Gastrooesophageal reflux disease [Unknown]
  - Osteoarthritis [Unknown]
  - Hypercholesterolaemia [Unknown]
  - Swelling face [Unknown]
  - Hordeolum [Unknown]
  - Dyskinesia [Unknown]
  - Hypophagia [Unknown]
  - Oesophagitis [Unknown]
  - Spinal osteoarthritis [Unknown]
  - Intervertebral disc degeneration [Unknown]
  - Oedema [Unknown]
  - Gastritis [Unknown]
  - Tricuspid valve incompetence [Unknown]
  - Pulmonary hypertension [Unknown]
  - Discomfort [Unknown]
  - Pancreatic duct dilatation [Unknown]
  - Mitral valve prolapse [Unknown]
  - Biliary dilatation [Unknown]
  - Facet joint syndrome [Unknown]
  - Carpal tunnel syndrome [Unknown]
  - Intestinal obstruction [Unknown]
  - Bone lesion [Unknown]
  - Intervertebral disc protrusion [Unknown]
  - Vertebral foraminal stenosis [Unknown]
